FAERS Safety Report 10445388 (Version 2)
Quarter: 2014Q3

REPORT INFORMATION
  Report Type: Spontaneous
  Country: US (occurrence: US)
  Receive Date: 20140908
  Receipt Date: 20140908
  Transmission Date: 20150326
  Serious: Yes (Hospitalization)
  Sender: FDA-Public Use
  Company Number: US-BRISTOL-MYERS SQUIBB COMPANY-20719001

PATIENT
  Age: 52 Year
  Sex: Female

DRUGS (6)
  1. ZOLOFT [Suspect]
     Active Substance: SERTRALINE HYDROCHLORIDE
  2. LEVAQUIN [Suspect]
     Active Substance: LEVOFLOXACIN
  3. ZYPREXA [Suspect]
     Active Substance: OLANZAPINE
  4. ATIVAN [Suspect]
     Active Substance: LORAZEPAM
  5. ABILIFY [Suspect]
     Active Substance: ARIPIPRAZOLE
  6. FLEXERIL [Suspect]
     Active Substance: CYCLOBENZAPRINE HYDROCHLORIDE

REACTIONS (2)
  - Drooling [Unknown]
  - Muscle rigidity [Unknown]
